FAERS Safety Report 9299055 (Version 1)
Quarter: 2013Q2

REPORT INFORMATION
  Report Type: Spontaneous
  Country: IT (occurrence: IT)
  Receive Date: 20130520
  Receipt Date: 20130520
  Transmission Date: 20140414
  Serious: Yes (Death, Hospitalization)
  Sender: FDA-Public Use
  Company Number: IT-BRISTOL-MYERS SQUIBB COMPANY-18883132

PATIENT
  Age: 48 Year
  Sex: Male

DRUGS (10)
  1. COUMADIN TABS 5 MG [Suspect]
     Indication: MYOCARDIAL ISCHAEMIA
     Dosage: DOSAGE/1/UNIT/DAILY/ORALLY
     Route: 048
     Dates: start: 20090101, end: 20130313
  2. TORVAST [Suspect]
     Indication: ARTERIOSCLEROSIS
     Dosage: DOSAGE/1/UNIT/DAILY/ORALLY?ALSO TAKEN:TORVAST 80MG FEW MONTHS.
     Route: 048
     Dates: start: 20010101, end: 20130313
  3. LIMPIDEX [Concomitant]
     Dosage: CAPS
  4. ZYLORIC [Concomitant]
     Dosage: TABS
  5. LANITOP [Concomitant]
     Dosage: TABS
     Dates: start: 20100101, end: 20130313
  6. NORVASC [Concomitant]
     Dosage: TABS
  7. LASIX [Concomitant]
     Dosage: TABS
  8. LUVION [Concomitant]
     Dosage: TABS
  9. CARVIPRESS [Concomitant]
     Dosage: TABS
  10. CARDIOASPIRIN [Concomitant]
     Dosage: TABS

REACTIONS (4)
  - Rhabdomyolysis [Fatal]
  - Renal failure [Unknown]
  - Thrombocytopenia [Unknown]
  - Epistaxis [Unknown]
